FAERS Safety Report 7453565-X (Version None)
Quarter: 2011Q2

REPORT INFORMATION
  Report Type: 
  Country: None (occurrence: None)
  Receive Date: 20110502
  Receipt Date: 20110221
  Transmission Date: 20111010
  Serious: No
  Sender: FDA-Public Use
  Company Number: US-ASTRAZENECA-2011SE10015

PATIENT
  Age: 21668 Day
  Sex: Female
  Weight: 89.4 kg

DRUGS (3)
  1. NAPROXEN [Concomitant]
     Indication: ARTHRITIS
  2. NEXIUM [Suspect]
     Indication: GASTROOESOPHAGEAL REFLUX DISEASE
     Route: 048
     Dates: start: 20070101
  3. SINGULAIR [Concomitant]
     Indication: DRUG HYPERSENSITIVITY

REACTIONS (1)
  - NASOPHARYNGITIS [None]
